FAERS Safety Report 8968733 (Version 1)
Quarter: 2012Q4

REPORT INFORMATION
  Report Type: 
  Country: US (occurrence: US)
  Receive Date: 20121217
  Receipt Date: 20121217
  Transmission Date: 20130627
  Serious: Yes (Death)
  Sender: FDA-Public Use
  Company Number: US-PURDUE-USA-2012-0096866

PATIENT
  Sex: Female

DRUGS (2)
  1. BUTRANS [Suspect]
     Indication: PAIN
     Dosage: 10 mcg/hr, daily
     Route: 062
  2. BUTRANS [Suspect]
     Dosage: 20 mcg/hr, daily
     Route: 062

REACTIONS (2)
  - Death [Fatal]
  - Inadequate analgesia [Unknown]
